FAERS Safety Report 21657438 (Version 1)
Quarter: 2022Q4

REPORT INFORMATION
  Report Type: Spontaneous
  Country: US (occurrence: US)
  Receive Date: 20221129
  Receipt Date: 20221129
  Transmission Date: 20230113
  Serious: Yes (Hospitalization)
  Sender: FDA-Public Use
  Company Number: US-002147023-NVSC2022US265464

PATIENT
  Sex: Male

DRUGS (2)
  1. TAFINLAR [Suspect]
     Active Substance: DABRAFENIB MESYLATE
     Indication: Histiocytic sarcoma
     Dosage: 75 MG, BID
     Route: 048
     Dates: start: 202209
  2. MEKINIST [Suspect]
     Active Substance: TRAMETINIB DIMETHYL SULFOXIDE
     Indication: Histiocytic sarcoma
     Dosage: 2 MG, QD
     Route: 048

REACTIONS (2)
  - White blood cell count increased [Unknown]
  - Product use in unapproved indication [Unknown]
